FAERS Safety Report 7812565-8 (Version None)
Quarter: 2011Q4

REPORT INFORMATION
  Report Type: 
  Country: None (occurrence: None)
  Receive Date: 20111013
  Receipt Date: 20110920
  Transmission Date: 20120403
  Serious: No
  Sender: FDA-Public Use
  Company Number: US-NOVEN-11US003255

PATIENT
  Sex: Female
  Weight: 72.562 kg

DRUGS (7)
  1. FENTANYL [Suspect]
     Indication: GASTRIC BYPASS
     Dosage: 75 UG/HR, Q72HRS
     Route: 062
     Dates: start: 20110101
  2. METOPROLOL TARTRATE [Concomitant]
     Indication: PRODUCT USED FOR UNKNOWN INDICATION
     Dosage: UNK
     Route: 048
  3. FENTANYL [Suspect]
     Indication: BURNING SENSATION
     Dosage: 25 UG/HR, Q72HRS
     Route: 062
     Dates: start: 20110223, end: 20110101
  4. CYMBALTA [Concomitant]
     Indication: PRODUCT USED FOR UNKNOWN INDICATION
     Dosage: UNK
     Route: 048
  5. HYDROCODONE BITARTRATE [Concomitant]
     Indication: PRODUCT USED FOR UNKNOWN INDICATION
     Dosage: 7.5 UNK, UNK
     Route: 048
  6. FENTANYL [Suspect]
     Indication: SURGERY
     Dosage: 50 UG/HR, Q72HRS
     Route: 062
     Dates: start: 20110101, end: 20110101
  7. AMITRIPTYLINE HCL [Concomitant]
     Indication: PRODUCT USED FOR UNKNOWN INDICATION
     Dosage: UNK
     Route: 048

REACTIONS (10)
  - BURNING SENSATION [None]
  - DYSPNOEA [None]
  - FEELING ABNORMAL [None]
  - CARDIAC FLUTTER [None]
  - PRODUCT QUALITY ISSUE [None]
  - INADEQUATE ANALGESIA [None]
  - APPLICATION SITE ERYTHEMA [None]
  - APPLICATION SITE PRURITUS [None]
  - WEIGHT DECREASED [None]
  - DRUG ADMINISTRATION ERROR [None]
